FAERS Safety Report 5562431-6 (Version None)
Quarter: 2007Q4

REPORT INFORMATION
  Report Type: 
  Country: None (occurrence: None)
  Receive Date: 20071215
  Receipt Date: 20070508
  Transmission Date: 20080405
  Serious: No
  Sender: FDA-Public Use
  Company Number: US-AMGEN-US223906

PATIENT
  Sex: Female

DRUGS (1)
  1. ENBREL [Suspect]
     Indication: PSORIASIS
     Route: 058
     Dates: start: 20031001

REACTIONS (6)
  - HEADACHE [None]
  - NASAL CONGESTION [None]
  - PYREXIA [None]
  - RHINORRHOEA [None]
  - SINUSITIS [None]
  - WEIGHT INCREASED [None]
